FAERS Safety Report 6290758-1 (Version None)
Quarter: 2009Q3

REPORT INFORMATION
  Report Type: 
  Country: None (occurrence: None)
  Receive Date: 20090730
  Receipt Date: 20090721
  Transmission Date: 20100115
  Serious: Yes (Hospitalization)
  Sender: FDA-Public Use
  Company Number: PHHY2009JP19527

PATIENT
  Sex: Male
  Weight: 86 kg

DRUGS (4)
  1. SANDOSTATIN LAR [Suspect]
     Indication: ACROMEGALY
     Dosage: 20 MG, QMO
     Route: 030
     Dates: start: 20080826, end: 20090402
  2. BLOPRESS [Concomitant]
     Dosage: 8 MG, UNK
     Route: 048
  3. AMLODIPINE [Concomitant]
     Dosage: 5 MG, UNK
     Route: 048
  4. CARDENALIN [Concomitant]
     Indication: HYPERTENSION
     Dosage: 4 MG, UNK
     Route: 048
     Dates: end: 20090301

REACTIONS (5)
  - ABDOMINAL PAIN [None]
  - BILIARY DILATATION [None]
  - CHOLECYSTITIS [None]
  - CHOLELITHIASIS [None]
  - CONDITION AGGRAVATED [None]
